FAERS Safety Report 4554878-1 (Version None)
Quarter: 2005Q1

REPORT INFORMATION
  Report Type: 
  Country: None (occurrence: None)
  Receive Date: 20050110
  Receipt Date: 20041224
  Transmission Date: 20050727
  Serious: Yes (Hospitalization)
  Sender: FDA-Public Use
  Company Number: 2004-00916

PATIENT
  Age: 68 Year
  Sex: Male

DRUGS (1)
  1. IMMUCYST (BCG -IT (CONNAUGHT)), AVENTIS PASTEUR LTD, LOT NOT REP, I1 [Suspect]
     Indication: BLADDER CANCER
     Dosage: 81.0 MG
     Route: 043
     Dates: start: 20040316

REACTIONS (13)
  - BOVINE TUBERCULOSIS [None]
  - CHOLESTASIS [None]
  - CYTOLYTIC HEPATITIS [None]
  - HEPATOSPLENOMEGALY [None]
  - HYPERSENSITIVITY [None]
  - HYPERVOLAEMIA [None]
  - IMMUNE SYSTEM DISORDER [None]
  - INTERSTITIAL LUNG DISEASE [None]
  - LUNG INFILTRATION [None]
  - LYMPHADENITIS [None]
  - PANCYTOPENIA [None]
  - PLEURAL DISORDER [None]
  - REFUSAL OF TREATMENT BY PATIENT [None]
